FAERS Safety Report 8620689-0 (Version None)
Quarter: 2012Q3

REPORT INFORMATION
  Report Type: 
  Country: None (occurrence: None)
  Receive Date: 20120824
  Receipt Date: 20120213
  Transmission Date: 20120928
  Serious: Yes (Other)
  Sender: FDA-Public Use
  Company Number: US-009507513-1208USA007146

PATIENT

DRUGS (3)
  1. RIBASPHERE [Suspect]
     Indication: HEPATITIS C
     Dosage: 1200 MG, QD
  2. PEGASYS [Suspect]
     Indication: HEPATITIS C
     Dosage: 180 MICROGRAM, QW
  3. VICTRELIS [Suspect]
     Indication: HEPATITIS C
     Dosage: 4 TABLETS 3 IN ONE DOSE

REACTIONS (6)
  - DIARRHOEA [None]
  - HEADACHE [None]
  - THYROID DISORDER [None]
  - WEIGHT DECREASED [None]
  - FATIGUE [None]
  - DIZZINESS [None]
